FAERS Safety Report 4783670-8 (Version None)
Quarter: 2005Q3

REPORT INFORMATION
  Report Type: 
  Country: None (occurrence: None)
  Receive Date: 20050927
  Receipt Date: 20050831
  Transmission Date: 20060218
  Serious: No
  Sender: FDA-Public Use
  Company Number: USA050496331

PATIENT
  Age: 10 Year
  Sex: Male
  Weight: 31 kg

DRUGS (3)
  1. STRATTERA [Suspect]
     Indication: ATTENTION DEFICIT/HYPERACTIVITY DISORDER
     Dosage: 40 MG DAY
  2. ZOLOFT [Concomitant]
  3. CLONIDINE [Concomitant]

REACTIONS (11)
  - ANOREXIA [None]
  - DERMATITIS CONTACT [None]
  - DISTURBANCE IN ATTENTION [None]
  - GROWTH RETARDATION [None]
  - INCREASED TENDENCY TO BRUISE [None]
  - NASOPHARYNGITIS [None]
  - SKIN DISCOLOURATION [None]
  - TACHYCARDIA [None]
  - THYROID FUNCTION TEST ABNORMAL [None]
  - VIRAL INFECTION [None]
  - WEIGHT INCREASED [None]
